FAERS Safety Report 8428772-X (Version None)
Quarter: 2012Q2

REPORT INFORMATION
  Report Type: 
  Country: None (occurrence: None)
  Receive Date: 20120612
  Receipt Date: 20120604
  Transmission Date: 20120825
  Serious: Yes (Hospitalization)
  Sender: FDA-Public Use
  Company Number: US-BAYER-2012-056353

PATIENT
  Age: 17 Year
  Sex: Female
  Weight: 81.8 kg

DRUGS (11)
  1. NAPROXEN (ALEVE) [Concomitant]
     Indication: PAIN
  2. TYLENOL W/ CODEINE [Concomitant]
  3. MORPHINE [Concomitant]
     Dosage: UNK
     Dates: end: 20120103
  4. BEYAZ [Suspect]
  5. VITAMIN K TAB [Concomitant]
  6. YAZ [Suspect]
  7. BENADRYL [Concomitant]
  8. CLARITIN-D [Concomitant]
  9. MEPHYTON [Concomitant]
  10. EPIPEN [Concomitant]
     Dosage: UNK UNK, PRN
  11. MIRALAX [Concomitant]

REACTIONS (2)
  - DEEP VEIN THROMBOSIS [None]
  - PULMONARY EMBOLISM [None]
